FAERS Safety Report 9221749 (Version 1)
Quarter: 2013Q2

REPORT INFORMATION
  Report Type: Spontaneous
  Country: MX (occurrence: MX)
  Receive Date: 20130410
  Receipt Date: 20130410
  Transmission Date: 20140414
  Serious: Yes (Other)
  Sender: FDA-Public Use
  Company Number: MX-AMGEN-MEXSP2013024357

PATIENT
  Age: 68 Year
  Sex: Female
  Weight: 62.5 kg

DRUGS (1)
  1. NEULASTIM [Suspect]
     Indication: APLASTIC ANAEMIA
     Dosage: UNK
     Route: 065
     Dates: start: 201302

REACTIONS (4)
  - Leukocytosis [Recovering/Resolving]
  - Splenomegaly [Recovering/Resolving]
  - Splenic rupture [Recovering/Resolving]
  - Pneumonia [Not Recovered/Not Resolved]
